FAERS Safety Report 8443485-6 (Version None)
Quarter: 2012Q2

REPORT INFORMATION
  Report Type: 
  Country: None (occurrence: None)
  Receive Date: 20120618
  Receipt Date: 20120606
  Transmission Date: 20120825
  Serious: Yes (Hospitalization)
  Sender: FDA-Public Use
  Company Number: US-JNJFOC-20120604073

PATIENT
  Sex: Female
  Weight: 72.58 kg

DRUGS (1)
  1. REMICADE [Suspect]
     Indication: ARTHRITIS
     Route: 042
     Dates: start: 20110101

REACTIONS (3)
  - BLOOD GLUCOSE DECREASED [None]
  - COMA [None]
  - BRAIN INJURY [None]
